FAERS Safety Report 15353881 (Version 1)
Quarter: 2018Q3

REPORT INFORMATION
  Report Type: Spontaneous
  Country: US (occurrence: US)
  Receive Date: 20180905
  Receipt Date: 20180905
  Transmission Date: 20181010
  Serious: Yes (Hospitalization)
  Sender: FDA-Public Use
  Company Number: US-VIFOR (INTERNATIONAL) INC.-VIT-2018-08668

PATIENT
  Age: 89 Year
  Sex: Male

DRUGS (15)
  1. ALLOPURINOL. [Concomitant]
     Active Substance: ALLOPURINOL
  2. COREG [Concomitant]
     Active Substance: CARVEDILOL
  3. VITAMIN B COMPLEX [Concomitant]
     Active Substance: CYANOCOBALAMIN\DEXPANTHENOL\NIACINAMIDE\PYRIDOXINE HYDROCHLORIDE\RIBOFLAVIN 5^-PHOSPHATE SODIUM\THIAMINE HYDROCHLORIDE\VITAMIN B COMPLEX
  4. CALCIUM + D [Concomitant]
     Active Substance: CALCIUM\VITAMIN D
  5. HYDROXYQUINOLINE SULFATE [Concomitant]
  6. FINASTERIDE. [Concomitant]
     Active Substance: FINASTERIDE
  7. COUMADIN [Concomitant]
     Active Substance: WARFARIN SODIUM
  8. LISINOPRIL. [Concomitant]
     Active Substance: LISINOPRIL
  9. VELTASSA [Suspect]
     Active Substance: PATIROMER
     Indication: HYPERKALAEMIA
     Dosage: ONE PACKET IN 1/3RD CUP OF WATER
     Dates: start: 20180104
  10. COLACE [Concomitant]
     Active Substance: DOCUSATE SODIUM
  11. CARBIDOPA?LEVODOPA [Concomitant]
     Active Substance: CARBIDOPA\LEVODOPA
  12. FERROUS SULFATE. [Concomitant]
     Active Substance: FERROUS SULFATE
  13. MIRTAZAPINE. [Concomitant]
     Active Substance: MIRTAZAPINE
  14. BUMETANIDE. [Concomitant]
     Active Substance: BUMETANIDE
  15. TAMSULOSIN HCL [Concomitant]
     Active Substance: TAMSULOSIN HYDROCHLORIDE

REACTIONS (1)
  - Hospitalisation [Unknown]

NARRATIVE: CASE EVENT DATE: 201805
